FAERS Safety Report 13826628 (Version 1)
Quarter: 2017Q3

REPORT INFORMATION
  Report Type: Spontaneous
  Country: US (occurrence: US)
  Receive Date: 20170802
  Receipt Date: 20170802
  Transmission Date: 20171127
  Serious: No
  Sender: FDA-Public Use
  Company Number: US-ROCHE-642370

PATIENT
  Age: 92 Year

DRUGS (1)
  1. BONIVA [Suspect]
     Active Substance: IBANDRONATE SODIUM
     Indication: OSTEOPOROSIS
     Route: 065
     Dates: start: 200904, end: 20090701

REACTIONS (2)
  - Jaw disorder [Not Recovered/Not Resolved]
  - Onychoclasis [Not Recovered/Not Resolved]
